FAERS Safety Report 22961466 (Version 2)
Quarter: 2023Q4

REPORT INFORMATION
  Report Type: Report from Study
  Country: DE (occurrence: DE)
  Receive Date: 20230920
  Receipt Date: 20231022
  Transmission Date: 20240110
  Serious: Yes (Hospitalization)
  Sender: FDA-Public Use
  Company Number: DE-002147023-NVSC2023DE200325

PATIENT
  Age: 50 Year
  Sex: Female
  Weight: 72 kg

DRUGS (9)
  1. COSENTYX [Suspect]
     Active Substance: SECUKINUMAB
     Indication: Ankylosing spondylitis
     Dosage: 150 MG (ONCE)
     Route: 065
     Dates: start: 20230531, end: 20230531
  2. COSENTYX [Suspect]
     Active Substance: SECUKINUMAB
     Dosage: 150 MG (ONCE)
     Route: 065
     Dates: start: 20230607, end: 20230607
  3. COSENTYX [Suspect]
     Active Substance: SECUKINUMAB
     Dosage: 150 MG (ONCE)
     Route: 065
     Dates: start: 20230614, end: 20230614
  4. COSENTYX [Suspect]
     Active Substance: SECUKINUMAB
     Dosage: 150 MG (ONCE)
     Route: 065
     Dates: start: 20230621, end: 20230621
  5. COSENTYX [Suspect]
     Active Substance: SECUKINUMAB
     Dosage: 150 MG (ONCE)
     Route: 065
     Dates: start: 20230628, end: 20230628
  6. CHOLECALCIFEROL [Concomitant]
     Active Substance: CHOLECALCIFEROL
     Indication: Ankylosing spondylitis
     Dosage: 20000 IU, QW
     Route: 048
     Dates: start: 202104
  7. ARCOXIA [Concomitant]
     Active Substance: ETORICOXIB
     Indication: Ankylosing spondylitis
     Dosage: 90 MG, QD (PER DAY IF NEEDED)
     Route: 048
     Dates: start: 201809
  8. METAMIZOLE [Concomitant]
     Active Substance: METAMIZOLE
     Indication: Ankylosing spondylitis
     Dosage: 500 MG, QD (PER DAY IF NEEDED)
     Route: 048
     Dates: start: 202202
  9. IBUPROFEN [Concomitant]
     Active Substance: IBUPROFEN
     Indication: Ankylosing spondylitis
     Dosage: 600 MG, QD (PER DAY IF NEEDED)
     Route: 048
     Dates: start: 2018

REACTIONS (1)
  - Cutaneous vasculitis [Recovered/Resolved]

NARRATIVE: CASE EVENT DATE: 20230708
